FAERS Safety Report 4479822-7 (Version None)
Quarter: 2004Q4

REPORT INFORMATION
  Report Type: 
  Country: None (occurrence: None)
  Receive Date: 20041019
  Receipt Date: 20041013
  Transmission Date: 20050328
  Serious: Yes (Other)
  Sender: FDA-Public Use
  Company Number: 002950

PATIENT
  Age: 64 Year
  Sex: Female

DRUGS (4)
  1. MEDROXYPROGESTERONE ACETATE [Suspect]
     Indication: OSTEOPOROSIS
     Dates: start: 19860101, end: 19930101
  2. PREMARIN [Suspect]
     Indication: OSTEOPOROSIS
     Dates: start: 19860101, end: 19930101
  3. CYCRIN [Suspect]
     Indication: OSTEOPOROSIS
     Dates: start: 19890101, end: 19930101
  4. PROVERA [Suspect]
     Indication: OSTEOPOROSIS
     Dates: start: 19890101, end: 19930101

REACTIONS (4)
  - BREAST CANCER FEMALE [None]
  - BREAST CANCER IN SITU [None]
  - OESTROGEN RECEPTOR ASSAY POSITIVE [None]
  - PROGESTERONE RECEPTOR ASSAY POSITIVE [None]
